FAERS Safety Report 17900147 (Version 1)
Quarter: 2020Q2

REPORT INFORMATION
  Report Type: Spontaneous
  Country: CN (occurrence: CN)
  Receive Date: 20200616
  Receipt Date: 20200616
  Transmission Date: 20200714
  Serious: Yes (Death)
  Sender: FDA-Public Use
  Company Number: CN-ROCHE-2622114

PATIENT
  Age: 63 Year
  Sex: Male

DRUGS (12)
  1. OXALIPLATIN. [Concomitant]
     Active Substance: OXALIPLATIN
     Indication: ADENOCARCINOMA OF COLON
     Dosage: FOLFOX6, FOR 8 CYCLES
     Route: 065
     Dates: start: 20171207, end: 20180429
  2. CALCIUM FOLINATE [Concomitant]
     Active Substance: LEUCOVORIN CALCIUM
     Indication: ADENOCARCINOMA OF COLON
     Dosage: FOLFOX6, FOR 8 CYCLES
     Route: 065
     Dates: start: 20171207, end: 20180429
  3. AVASTIN [Suspect]
     Active Substance: BEVACIZUMAB
     Dosage: FOR 4 CYCLES
     Route: 065
     Dates: start: 20181113, end: 20190307
  4. IRINOTECAN [Concomitant]
     Active Substance: IRINOTECAN
     Indication: ADENOCARCINOMA OF COLON
     Dosage: FOR 1 CYCLES
     Route: 065
     Dates: start: 20190402, end: 20190703
  5. OXALIPLATIN. [Concomitant]
     Active Substance: OXALIPLATIN
     Dosage: CAPEOX, FOR 3 CYCLES
     Route: 065
     Dates: start: 20180615, end: 20180905
  6. AVASTIN [Suspect]
     Active Substance: BEVACIZUMAB
     Dosage: FOR 3 CYCLES
     Route: 065
     Dates: start: 20180615, end: 20180905
  7. 5-FLUOROURACIL [FLUOROURACIL] [Concomitant]
     Active Substance: FLUOROURACIL
     Indication: ADENOCARCINOMA OF COLON
     Dosage: FOLFOX6, FOR 8 CYCLES
     Route: 065
     Dates: start: 20171207, end: 20180429
  8. AVASTIN [Suspect]
     Active Substance: BEVACIZUMAB
     Indication: ADENOCARCINOMA OF COLON
     Dosage: FOR 8 CYCLES
     Route: 065
     Dates: start: 20171207, end: 20180429
  9. XELODA [Suspect]
     Active Substance: CAPECITABINE
     Indication: ADENOCARCINOMA OF COLON
     Dosage: CAPEOX, FOR 3 CYCLES
     Route: 048
     Dates: start: 20180615, end: 20180905
  10. XELODA [Suspect]
     Active Substance: CAPECITABINE
     Dosage: FOR 4 CYCLES
     Route: 048
     Dates: start: 20181113, end: 20190307
  11. REGORAFENIB. [Concomitant]
     Active Substance: REGORAFENIB
     Indication: ADENOCARCINOMA OF COLON
     Route: 065
     Dates: start: 20190703, end: 20190809
  12. RALTITREXED [Concomitant]
     Active Substance: RALTITREXED
     Indication: ADENOCARCINOMA OF COLON
     Dosage: FOR 1 CYCLES
     Route: 065
     Dates: start: 20190402, end: 20190703

REACTIONS (1)
  - Death [Fatal]
